FAERS Safety Report 10504931 (Version 1)
Quarter: 2014Q4

REPORT INFORMATION
  Report Type: Spontaneous
  Country: HU (occurrence: HU)
  Receive Date: 20141008
  Receipt Date: 20141008
  Transmission Date: 20150528
  Serious: Yes (Other)
  Sender: FDA-Public Use
  Company Number: HU-ACTAVIS-2014-21391

PATIENT
  Age: 29 Year
  Sex: Female

DRUGS (2)
  1. CISPLATIN EBEWE [Suspect]
     Active Substance: CISPLATIN
     Indication: BREAST CANCER
     Dosage: 120 MG, DAILY
     Route: 017
  2. CAMITOTIC [Suspect]
     Active Substance: DOCETAXEL
     Indication: BREAST CANCER
     Dosage: 120 MG, DAILY
     Route: 017

REACTIONS (9)
  - Suffocation feeling [Recovered/Resolved]
  - Panic reaction [Recovered/Resolved]
  - Abdominal pain upper [Recovered/Resolved]
  - Paraesthesia [Recovered/Resolved]
  - Throat irritation [Recovered/Resolved]
  - Drug interaction [None]
  - Choking sensation [Recovered/Resolved]
  - Gastrooesophageal reflux disease [Recovered/Resolved]
  - Hyperhidrosis [Recovered/Resolved]

NARRATIVE: CASE EVENT DATE: 20140910
